FAERS Safety Report 7054876-2 (Version None)
Quarter: 2010Q4

REPORT INFORMATION
  Report Type: 
  Country: None (occurrence: None)
  Receive Date: 20101021
  Receipt Date: 20101012
  Transmission Date: 20110411
  Serious: No
  Sender: FDA-Public Use
  Company Number: US-BIOGENIDEC-2010BI030431

PATIENT
  Age: 59 Year
  Sex: Female

DRUGS (1)
  1. TYSABRI [Suspect]
     Indication: MULTIPLE SCLEROSIS
     Route: 042
     Dates: start: 20081223, end: 20100727

REACTIONS (6)
  - ANTIBODY TEST POSITIVE [None]
  - ARTHRALGIA [None]
  - DRUG SPECIFIC ANTIBODY PRESENT [None]
  - FACIAL PAIN [None]
  - HEARING IMPAIRED [None]
  - MULTIPLE ALLERGIES [None]
